FAERS Safety Report 7831013-5 (Version None)
Quarter: 2011Q4

REPORT INFORMATION
  Report Type: 
  Country: None (occurrence: None)
  Receive Date: 20111021
  Receipt Date: 20111017
  Transmission Date: 20120403
  Serious: Yes (Death, Hospitalization)
  Sender: FDA-Public Use
  Company Number: JP-PFIZER INC-2011211548

PATIENT
  Age: 40 Year
  Sex: Female
  Weight: 71 kg

DRUGS (14)
  1. ALPRAZOLAM [Concomitant]
     Indication: DEPRESSION
     Dosage: 0.8 MG, 2X/DAY
     Route: 048
     Dates: start: 20110528
  2. RABEPRAZOLE SODIUM [Concomitant]
     Indication: RHEUMATOID ARTHRITIS
     Dosage: 10 MG, 1X/DAY
     Route: 048
     Dates: start: 20101122
  3. SEROQUEL [Suspect]
     Indication: HALLUCINATION
     Dosage: 25 MG, 1X/DAY
     Route: 048
     Dates: start: 20110530
  4. MUCOSTA [Concomitant]
     Indication: RHEUMATOID ARTHRITIS
     Dosage: 200 MG, 2X/DAY
     Route: 048
     Dates: start: 20110601
  5. EURODIN [Concomitant]
  6. CELECOXIB [Concomitant]
     Indication: RHEUMATOID ARTHRITIS
     Dosage: 200 MG, 2X/DAY
     Route: 048
     Dates: start: 20101227
  7. SEROQUEL [Suspect]
     Indication: DELUSION
  8. ZYPREXA [Suspect]
     Indication: HALLUCINATION
     Dosage: 5 MG, 1X/DAY
     Route: 048
     Dates: start: 20110611, end: 20110630
  9. ZYPREXA [Suspect]
     Indication: DELUSION
  10. ZOLOFT [Suspect]
     Indication: DEPRESSION
     Dosage: 50 MG, 1X/DAY
     Route: 048
     Dates: start: 20110528
  11. ENBREL [Concomitant]
     Indication: RHEUMATOID ARTHRITIS
     Dosage: 25 MG, 2X/WEEK
     Route: 058
     Dates: start: 20101206
  12. METHOTREXATE [Concomitant]
     Indication: RHEUMATOID ARTHRITIS
     Dosage: 4 MG, WEEKLY
     Route: 048
     Dates: start: 20100422
  13. ROHYPNOL [Concomitant]
     Indication: DEPRESSION
     Dosage: 1 MG, 1X/DAY
     Route: 048
     Dates: start: 20110528
  14. FOLIC ACID [Concomitant]
     Indication: RHEUMATOID ARTHRITIS
     Dosage: 5 MG, WEEKLY
     Route: 048
     Dates: start: 20100702

REACTIONS (4)
  - PARKINSONISM [None]
  - CARDIAC ARREST [None]
  - RESPIRATORY ARREST [None]
  - NEUROLEPTIC MALIGNANT SYNDROME [None]
